FAERS Safety Report 7360072-1 (Version None)
Quarter: 2011Q1

REPORT INFORMATION
  Report Type: 
  Country: None (occurrence: None)
  Receive Date: 20110317
  Receipt Date: 20110310
  Transmission Date: 20110831
  Serious: Yes (Hospitalization)
  Sender: FDA-Public Use
  Company Number: GB-ELI_LILLY_AND_COMPANY-GB201103003640

PATIENT
  Age: 55 Year
  Sex: Male

DRUGS (7)
  1. GEMCITABINE HYDROCHLORIDE [Suspect]
     Indication: TRANSITIONAL CELL CARCINOMA
     Dosage: UNK, UNK
     Route: 042
     Dates: start: 20100820
  2. SUNITINIB MALATE [Suspect]
     Indication: BLADDER TRANSITIONAL CELL CARCINOMA
     Dosage: UNK, UNK
     Dates: start: 20100820
  3. DIFFLAM [Concomitant]
     Dosage: 30 ML, DAILY (1/D)
     Dates: start: 20101029
  4. GEMCITABINE HYDROCHLORIDE [Suspect]
     Dosage: 750 MG/M2, UNK
     Dates: start: 20101231
  5. CISPLATIN [Suspect]
     Indication: TRANSITIONAL CELL CARCINOMA
     Dates: start: 20100820
  6. SUNITINIB MALATE [Suspect]
     Dosage: 12.5 MG, UNK
     Dates: start: 20101201
  7. METOCLOPRAMIDE [Concomitant]
     Dosage: 10 MG, DAILY (1/D)
     Dates: start: 20100823

REACTIONS (2)
  - ABDOMINAL DISCOMFORT [None]
  - CHEST DISCOMFORT [None]
